FAERS Safety Report 9191618 (Version 1)
Quarter: 2013Q1

REPORT INFORMATION
  Report Type: Report from Study
  Country: JP (occurrence: JP)
  Receive Date: 20130326
  Receipt Date: 20130326
  Transmission Date: 20140127
  Serious: Yes (Death)
  Sender: FDA-Public Use
  Company Number: JP-GILEAD-2013-0072342

PATIENT
  Age: 82 Year
  Sex: Female

DRUGS (18)
  1. AMBRISENTAN [Suspect]
     Indication: PULMONARY ARTERIAL HYPERTENSION
     Dosage: 2.5MG PER DAY
     Dates: start: 20110414
  2. AMBRISENTAN [Suspect]
     Dosage: 5MG PER DAY
     Route: 048
     Dates: start: 20110420, end: 20110513
  3. REVATIO [Concomitant]
     Indication: PULMONARY ARTERIAL HYPERTENSION
     Route: 048
  4. REVATIO [Concomitant]
     Route: 048
  5. TRACLEER                           /01587701/ [Concomitant]
     Indication: PULMONARY ARTERIAL HYPERTENSION
     Route: 048
  6. BERASUS [Concomitant]
     Indication: PULMONARY ARTERIAL HYPERTENSION
     Route: 048
  7. FUROSEMIDE [Concomitant]
     Indication: PULMONARY ARTERIAL HYPERTENSION
     Route: 048
  8. FUROSEMIDE [Concomitant]
     Route: 048
  9. LUPRAC [Concomitant]
     Indication: PULMONARY ARTERIAL HYPERTENSION
     Route: 048
  10. LUPRAC [Concomitant]
     Route: 048
  11. ZYLORIC [Concomitant]
     Route: 048
  12. ZYLORIC [Concomitant]
     Route: 048
  13. TAKEPRON [Concomitant]
     Route: 048
  14. TAKEPRON [Concomitant]
     Route: 048
  15. SLOW-K [Concomitant]
     Route: 048
  16. SLOW-K [Concomitant]
     Route: 048
  17. OXYGEN [Concomitant]
  18. TRACLEER                           /01587701/ [Concomitant]
     Indication: PULMONARY ARTERIAL HYPERTENSION
     Route: 048

REACTIONS (1)
  - Sudden death [Fatal]
